FAERS Safety Report 23905689 (Version 3)
Quarter: 2024Q4

REPORT INFORMATION
  Report Type: Spontaneous
  Country: US (occurrence: US)
  Receive Date: 20240527
  Receipt Date: 20241017
  Transmission Date: 20250115
  Serious: Yes (Other)
  Sender: PFIZER
  Company Number: US-PFIZER INC-PV202400068086

PATIENT
  Age: 60 Year
  Sex: Female

DRUGS (3)
  1. XELJANZ [Suspect]
     Active Substance: TOFACITINIB CITRATE
     Indication: Rheumatoid arthritis
     Dosage: 5 MG
     Route: 048
  2. XELJANZ [Suspect]
     Active Substance: TOFACITINIB CITRATE
     Dosage: 5MG TABLET BY MOUTH 1 TIME A DAY
     Route: 048
     Dates: start: 202405
  3. ORENCIA [Concomitant]
     Active Substance: ABATACEPT
     Dosage: UNK

REACTIONS (3)
  - Renal failure [Not Recovered/Not Resolved]
  - Depression [Recovering/Resolving]
  - Personality disorder [Recovering/Resolving]
